FAERS Safety Report 10302170 (Version 1)
Quarter: 2014Q3

REPORT INFORMATION
  Report Type: Spontaneous
  Country: US (occurrence: US)
  Receive Date: 20140714
  Receipt Date: 20140714
  Transmission Date: 20150326
  Serious: No
  Sender: FDA-Public Use
  Company Number: US-BAUSCH-BL-2014-002287

PATIENT
  Age: 74 Year
  Sex: Female
  Weight: 75.82 kg

DRUGS (3)
  1. DILTIAZEM [Concomitant]
     Active Substance: DILTIAZEM
     Indication: PRODUCT USED FOR UNKNOWN INDICATION
  2. LOSARTAN [Concomitant]
     Active Substance: LOSARTAN
     Indication: PRODUCT USED FOR UNKNOWN INDICATION
  3. BESIVANCE [Suspect]
     Active Substance: BESIFLOXACIN
     Indication: INFECTION PROPHYLAXIS
     Dosage: 1 DROP IN AFFECTED EYE 3 TIMES DAILY
     Route: 061
     Dates: start: 201403, end: 201404

REACTIONS (3)
  - Pain in extremity [Unknown]
  - Headache [Recovered/Resolved]
  - Off label use [Unknown]

NARRATIVE: CASE EVENT DATE: 201403
